FAERS Safety Report 20418883 (Version 1)
Quarter: 2022Q1

REPORT INFORMATION
  Report Type: Spontaneous
  Country: JP (occurrence: JP)
  Receive Date: 20220202
  Receipt Date: 20220202
  Transmission Date: 20220423
  Serious: Yes (Other)
  Sender: FDA-Public Use
  Company Number: JP-SUN PHARMACEUTICAL INDUSTRIES LTD-2022R1-324840

PATIENT
  Age: 49 Year
  Sex: Male

DRUGS (10)
  1. DEXAMETHASONE [Suspect]
     Active Substance: DEXAMETHASONE
     Indication: COVID-19 pneumonia
     Dosage: UNK (8 MG ON DAYS 20-33)
     Route: 065
  2. FAVIPIRAVIR [Suspect]
     Active Substance: FAVIPIRAVIR
     Indication: COVID-19 pneumonia
     Dosage: 3600 MILLIGRAM, DAILY (ON DAY 4)
     Route: 065
  3. FAVIPIRAVIR [Suspect]
     Active Substance: FAVIPIRAVIR
     Dosage: 1600 MILLIGRAM, DAILY (ON DAY 5-14)
     Route: 065
  4. METHYLPREDNISOLONE [Suspect]
     Active Substance: METHYLPREDNISOLONE
     Indication: COVID-19 pneumonia
     Dosage: 1000 MILLIGRAM, DAILY (ON DAYS 11-13)
     Route: 065
  5. METHYLPREDNISOLONE [Suspect]
     Active Substance: METHYLPREDNISOLONE
     Dosage: 500 MILLIGRAM, DAILY (ON DAYS 14-16)
     Route: 065
  6. METHYLPREDNISOLONE [Suspect]
     Active Substance: METHYLPREDNISOLONE
     Dosage: 250 MILLIGRAM, DAILY (ON DAYS 17-19)
     Route: 065
  7. HYDROXYCHLOROQUINE [Suspect]
     Active Substance: HYDROXYCHLOROQUINE
     Indication: COVID-19 pneumonia
     Dosage: 600 MILLIGRAM, DAILY (ON DAYS 11-15)
     Route: 065
  8. REMDESIVIR [Suspect]
     Active Substance: REMDESIVIR
     Indication: COVID-19 pneumonia
     Dosage: 200 MILLIGRAM, DAILY (ON DAY 15)
     Route: 065
  9. REMDESIVIR [Suspect]
     Active Substance: REMDESIVIR
     Dosage: 100 MILLIGRAM, DAILY (ON DAYS 16-19)
     Route: 065
  10. UNSPECIFIED INGREDIENT [Suspect]
     Active Substance: UNSPECIFIED INGREDIENT
     Indication: COVID-19 pneumonia
     Dosage: UNK (75 U/KG/DAY)
     Route: 065

REACTIONS (1)
  - Condition aggravated [Unknown]
